FAERS Safety Report 5379015-5 (Version None)
Quarter: 2007Q3

REPORT INFORMATION
  Report Type: 
  Country: None (occurrence: None)
  Receive Date: 20070705
  Receipt Date: 20070625
  Transmission Date: 20080115
  Serious: Yes (Death, Life-Threatening, Hospitalization, Other)
  Sender: FDA-Public Use
  Company Number: HQWYE510131JUL06

PATIENT
  Sex: Female
  Weight: 35 kg

DRUGS (7)
  1. MYLOTARG [Suspect]
     Indication: ACUTE MYELOID LEUKAEMIA
     Route: 041
     Dates: start: 20060602, end: 20060602
  2. CIPROFLOXACIN [Suspect]
     Indication: PNEUMONIA
     Dosage: 300 MG/DAY
     Route: 041
     Dates: start: 20060620, end: 20060622
  3. VANCOMYCIN HCL [Suspect]
     Indication: PNEUMONIA
     Dosage: 1 G/DAY
     Route: 041
     Dates: start: 20060614, end: 20060621
  4. BIAPENEM [Suspect]
     Indication: PNEUMONIA
     Dosage: 1.2 G/DAY
     Route: 041
     Dates: start: 20060616, end: 20060618
  5. BIAPENEM [Suspect]
     Dosage: 0.6 G/DAY
     Route: 041
     Dates: start: 20060619, end: 20060625
  6. AMINOACETIC ACID/CYSTEINE/GLYCYRRHIZIC ACID [Concomitant]
     Route: 042
     Dates: start: 20060603, end: 20060605
  7. GRAN [Suspect]
     Indication: NEUTROPHIL COUNT DECREASED
     Dosage: 300 UG/DAY
     Route: 041
     Dates: start: 20060614, end: 20060621

REACTIONS (17)
  - ACUTE MYELOID LEUKAEMIA [None]
  - ALANINE AMINOTRANSFERASE INCREASED [None]
  - ASPARTATE AMINOTRANSFERASE INCREASED [None]
  - BLOOD UREA INCREASED [None]
  - DISEASE PROGRESSION [None]
  - LIVER DISORDER [None]
  - NEUTROPHIL COUNT DECREASED [None]
  - PANCYTOPENIA [None]
  - PLATELET COUNT DECREASED [None]
  - PNEUMONIA [None]
  - RENAL DISORDER [None]
  - RESPIRATORY FAILURE [None]
  - SEPSIS [None]
  - SUBCUTANEOUS ABSCESS [None]
  - SYSTEMIC MYCOSIS [None]
  - TUMOUR LYSIS SYNDROME [None]
  - UPPER GASTROINTESTINAL HAEMORRHAGE [None]
